FAERS Safety Report 5885317-6 (Version None)
Quarter: 2008Q3

REPORT INFORMATION
  Report Type: 
  Country: None (occurrence: None)
  Receive Date: 20080916
  Receipt Date: 20080905
  Transmission Date: 20090109
  Serious: Yes (Death)
  Sender: FDA-Public Use
  Company Number: JP-PFIZER INC-2008075005

PATIENT
  Age: 72 Year
  Sex: Female

DRUGS (2)
  1. CELECOX [Suspect]
     Indication: RHEUMATOID ARTHRITIS
     Dosage: TEXT:200 MG/DAY
     Route: 048
     Dates: start: 20080222
  2. ETANERCEPT [Suspect]
     Indication: RHEUMATOID ARTHRITIS
     Dosage: TEXT:25 MG/DAY
     Route: 058

REACTIONS (1)
  - DEATH [None]
